FAERS Safety Report 10084189 (Version 3)
Quarter: 2014Q3

REPORT INFORMATION
  Report Type: Spontaneous
  Country: US (occurrence: None)
  Receive Date: 20140415
  Receipt Date: 20140929
  Transmission Date: 20150326
  Serious: Yes (Other)
  Sender: FDA-Public Use
  Company Number: 2014US003165

PATIENT
  Age: 87 Year
  Sex: Female
  Weight: 43 kg

DRUGS (10)
  1. ALPRAZOLAM. [Concomitant]
     Active Substance: ALPRAZOLAM
  2. CENTRUM (MINERALS NOS, VITAMINS NOS) [Concomitant]
  3. DRONABINOL. [Concomitant]
     Active Substance: DRONABINOL
  4. PONATINIB [Suspect]
     Active Substance: PONATINIB
     Indication: CHRONIC MYELOID LEUKAEMIA
     Route: 048
     Dates: start: 20110831, end: 20111120
  5. PRILOSEC [Concomitant]
     Active Substance: OMEPRAZOLE MAGNESIUM
  6. CLEARLAX (MACROGOL 3350) [Concomitant]
  7. METAMUCIL (PLANTAGO OVATA) [Concomitant]
  8. CLINDAMYCIN [Concomitant]
     Active Substance: CLINDAMYCIN\CLINDAMYCIN PHOSPHATE
  9. PREVIDENT 5000 PLUS (SODIUM FLUORIDE) [Concomitant]
  10. PROAIR HFA [Concomitant]
     Active Substance: ALBUTEROL SULFATE

REACTIONS (11)
  - Deep vein thrombosis [None]
  - Malaise [None]
  - Oxygen saturation decreased [None]
  - Decreased appetite [None]
  - Blood pressure increased [None]
  - Blood glucose increased [None]
  - Pain [None]
  - Phlebitis [None]
  - Drug interaction [None]
  - Asthenia [None]
  - Blood sodium decreased [None]

NARRATIVE: CASE EVENT DATE: 20111125
